FAERS Safety Report 6233352-0 (Version None)
Quarter: 2009Q2

REPORT INFORMATION
  Report Type: 
  Country: None (occurrence: None)
  Receive Date: 20090617
  Receipt Date: 20090605
  Transmission Date: 20091009
  Serious: Yes (Life-Threatening, Hospitalization, Other)
  Sender: FDA-Public Use
  Company Number: JP-PFIZER INC-2009191095

PATIENT
  Age: 31 Year

DRUGS (5)
  1. CHAMPIX [Suspect]
     Indication: NICOTINE DEPENDENCE
     Dosage: UNK
     Route: 048
     Dates: start: 20090103, end: 20090211
  2. PAXIL [Suspect]
     Indication: DEPRESSION
     Dosage: 20 MG, 1X/DAY
     Route: 048
  3. PAXIL [Suspect]
     Dosage: 10 MG, 1X/DAY
     Route: 048
     Dates: start: 20090209
  4. ZETIA [Concomitant]
     Indication: HYPERLIPIDAEMIA
     Dosage: UNK
     Route: 048
  5. BENZALIN [Concomitant]
     Indication: INSOMNIA
     Dosage: UNK
     Route: 048

REACTIONS (5)
  - ABDOMINAL PAIN [None]
  - CHEST DISCOMFORT [None]
  - DIARRHOEA [None]
  - SPINAL FRACTURE [None]
  - SUICIDE ATTEMPT [None]
